APPROVED DRUG PRODUCT: TRAZODONE HYDROCHLORIDE
Active Ingredient: TRAZODONE HYDROCHLORIDE
Strength: 150MG
Dosage Form/Route: TABLET;ORAL
Application: A206923 | Product #003 | TE Code: AB
Applicant: ACCORD HEALTHCARE INC
Approved: Sep 8, 2017 | RLD: No | RS: No | Type: RX